FAERS Safety Report 16322168 (Version 1)
Quarter: 2019Q2

REPORT INFORMATION
  Report Type: Spontaneous
  Country: BE (occurrence: BE)
  Receive Date: 20190516
  Receipt Date: 20190516
  Transmission Date: 20190711
  Serious: Yes (Death, Life-Threatening, Hospitalization)
  Sender: FDA-Public Use
  Company Number: BE-JNJFOC-20190510091

PATIENT
  Age: 77 Year
  Sex: Female
  Weight: 53 kg

DRUGS (1)
  1. REMICADE [Suspect]
     Active Substance: INFLIXIMAB
     Indication: INTERSTITIAL LUNG DISEASE
     Dosage: 5 MG/KG
     Route: 042
     Dates: start: 20190430, end: 20190430

REACTIONS (3)
  - Acute respiratory failure [Fatal]
  - Drug ineffective for unapproved indication [Unknown]
  - Off label use [Unknown]
